FAERS Safety Report 10170867 (Version 2)
Quarter: 2015Q1

REPORT INFORMATION
  Report Type: Spontaneous
  Country: GB (occurrence: None)
  Receive Date: 20140512
  Receipt Date: 20150224
  Transmission Date: 20150720
  Serious: Yes (Death, Other)
  Sender: FDA-Public Use
  Company Number: 2014GB010440

PATIENT
  Age: 42 Year
  Sex: Female

DRUGS (6)
  1. ALOXI [Suspect]
     Active Substance: PALONOSETRON HYDROCHLORIDE
     Indication: PROPHYLAXIS OF NAUSEA AND VOMITING
     Route: 042
     Dates: start: 20140207
  2. SODIUM CHLORIDE. [Concomitant]
     Active Substance: SODIUM CHLORIDE
     Indication: BREAST CANCER
  3. DOMPERIDONE [Suspect]
     Active Substance: DOMPERIDONE
     Indication: PROPHYLAXIS OF NAUSEA AND VOMITING
     Route: 048
  4. NEULASTA [Suspect]
     Active Substance: PEGFILGRASTIM
     Route: 058
     Dates: start: 20140208
  5. FLUCONAZOLE. [Suspect]
     Active Substance: FLUCONAZOLE
     Indication: ORAL CANDIDIASIS
     Route: 048
     Dates: start: 20140213, end: 20140213
  6. ABRAXANE [Suspect]
     Active Substance: PACLITAXEL
     Indication: BREAST CANCER
     Route: 041
     Dates: start: 20140207

REACTIONS (8)
  - Pyrexia [None]
  - Mucosal inflammation [None]
  - Hypophagia [None]
  - Renal failure [None]
  - Malaise [None]
  - Oropharyngeal pain [None]
  - Oral candidiasis [None]
  - Pain in extremity [None]

NARRATIVE: CASE EVENT DATE: 20140210
